FAERS Safety Report 5130538-3 (Version None)
Quarter: 2006Q4

REPORT INFORMATION
  Report Type: 
  Country: None (occurrence: None)
  Receive Date: 20061019
  Receipt Date: 20060315
  Transmission Date: 20070319
  Serious: Yes (Hospitalization)
  Sender: FDA-Public Use
  Company Number: HQWYE406720MAR06

PATIENT
  Sex: Female
  Weight: 84 kg

DRUGS (16)
  1. ENBREL [Suspect]
     Indication: RHEUMATOID ARTHRITIS
     Route: 058
     Dates: start: 20050712, end: 20051017
  2. ENBREL [Suspect]
     Route: 058
     Dates: start: 20051028
  3. ALFAROL [Concomitant]
     Route: 048
  4. SELBEX [Concomitant]
     Route: 048
  5. MUCOSOLVAN [Concomitant]
     Route: 048
  6. BLOPRESS [Concomitant]
     Route: 048
  7. ASPIRIN [Concomitant]
     Route: 048
  8. NORVASC [Concomitant]
     Route: 048
  9. ERYTHROCIN [Concomitant]
     Route: 048
  10. MOBIC [Concomitant]
     Indication: RHEUMATOID ARTHRITIS
     Route: 048
  11. BENET [Concomitant]
     Dosage: UNKNOWN
     Route: 048
  12. MONTELUKAST SODIUM [Concomitant]
     Dosage: UNKNOWN
     Route: 048
  13. LANSOPRAZOLE [Concomitant]
     Route: 048
  14. ZOLPIDEM TARTRATE [Concomitant]
     Dosage: UNKNOWN
     Route: 048
  15. SALIGREN [Concomitant]
     Dosage: UNKNOWN
     Route: 048
  16. SULFASALAZINE [Concomitant]
     Indication: RHEUMATOID ARTHRITIS
     Route: 048
     Dates: start: 19950801, end: 20050920

REACTIONS (1)
  - INTESTINAL ISCHAEMIA [None]
